FAERS Safety Report 5727401-3 (Version None)
Quarter: 2008Q2

REPORT INFORMATION
  Report Type: 
  Country: None (occurrence: None)
  Receive Date: 20080505
  Receipt Date: 20080417
  Transmission Date: 20081010
  Serious: Yes (Hospitalization, Other)
  Sender: FDA-Public Use
  Company Number: CA-BAYER-200711964GDS

PATIENT
  Age: 94 Year
  Sex: Female

DRUGS (10)
  1. ASPIRIN [Suspect]
     Indication: MYOCARDIAL INFARCTION
     Route: 065
     Dates: start: 20050801, end: 20051101
  2. DICLOFENAC [Suspect]
     Indication: ARTHRITIS
     Dosage: TOTAL DAILY DOSE: 150 MG
     Route: 065
     Dates: start: 20050401, end: 20051101
  3. ALTACE [Concomitant]
     Indication: DRUG USE FOR UNKNOWN INDICATION
  4. AMIODARONE HCL [Concomitant]
     Indication: DRUG USE FOR UNKNOWN INDICATION
  5. FUROSEMIDE [Concomitant]
     Indication: DRUG USE FOR UNKNOWN INDICATION
  6. LEVOTHYROXINE SODIUM [Concomitant]
     Indication: DRUG USE FOR UNKNOWN INDICATION
  7. NORVASC [Concomitant]
     Indication: DRUG USE FOR UNKNOWN INDICATION
  8. POTASSIUM CHLORIDE [Concomitant]
     Indication: DRUG USE FOR UNKNOWN INDICATION
  9. ZOPICLONE [Concomitant]
     Indication: DRUG USE FOR UNKNOWN INDICATION
  10. AMLODIPINE [Concomitant]

REACTIONS (4)
  - HAEMATEMESIS [None]
  - HAEMOGLOBIN DECREASED [None]
  - NAUSEA [None]
  - RED BLOOD CELL COUNT DECREASED [None]
